FAERS Safety Report 8318170-1 (Version None)
Quarter: 2012Q2

REPORT INFORMATION
  Report Type: 
  Country: None (occurrence: None)
  Receive Date: 20120427
  Receipt Date: 20120417
  Transmission Date: 20120825
  Serious: Yes (Hospitalization, Disabling)
  Sender: FDA-Public Use
  Company Number: BE-ROCHE-1060682

PATIENT
  Sex: Male
  Weight: 63.3 kg

DRUGS (6)
  1. AVASTIN [Suspect]
     Indication: RECTAL CANCER
  2. XELODA [Suspect]
     Indication: RECTAL CANCER
  3. OXALIPLATIN [Suspect]
     Indication: COLON CANCER
     Route: 042
     Dates: start: 20120213
  4. XELODA [Suspect]
     Indication: COLON CANCER
     Route: 048
     Dates: start: 20120213
  5. AVASTIN [Suspect]
     Indication: COLON CANCER
     Route: 042
     Dates: start: 20120213
  6. OXALIPLATIN [Suspect]
     Indication: RECTAL CANCER

REACTIONS (4)
  - ANAEMIA [None]
  - HYPOKALAEMIA [None]
  - COLITIS [None]
  - INTERNATIONAL NORMALISED RATIO INCREASED [None]
